FAERS Safety Report 16867456 (Version 1)
Quarter: 2019Q3

REPORT INFORMATION
  Report Type: Spontaneous
  Country: US (occurrence: US)
  Receive Date: 20190930
  Receipt Date: 20190930
  Transmission Date: 20191005
  Serious: No
  Sender: FDA-Public Use
  Company Number: US-MYLANLABS-2019M1087952

PATIENT
  Sex: Female

DRUGS (1)
  1. NORETHISTERONE [Suspect]
     Active Substance: NORETHINDRONE
     Indication: MENSTRUAL DISORDER
     Dosage: UNK

REACTIONS (1)
  - Abdominal symptom [Not Recovered/Not Resolved]
